FAERS Safety Report 6897684-5 (Version None)
Quarter: 2010Q3

REPORT INFORMATION
  Report Type: 
  Country: None (occurrence: None)
  Receive Date: 20100802
  Receipt Date: 20070620
  Transmission Date: 20110219
  Serious: Yes (Other)
  Sender: FDA-Public Use
  Company Number: US-PFIZER INC-2007051151

PATIENT
  Age: 43 Year
  Sex: Male

DRUGS (12)
  1. LYRICA [Suspect]
  2. DOXEPIN HCL [Concomitant]
  3. VERAPAMIL [Concomitant]
  4. DARVOCET [Concomitant]
  5. LIPITOR [Concomitant]
  6. MAXALT [Concomitant]
  7. ANAPRIL [Concomitant]
  8. LUNESTA [Concomitant]
  9. LEVOTHYROXINE SODIUM [Concomitant]
  10. PROPECIA [Concomitant]
  11. LASIX [Concomitant]
  12. EFFEXOR XR [Concomitant]

REACTIONS (1)
  - OEDEMA PERIPHERAL [None]
